FAERS Safety Report 24087524 (Version 1)
Quarter: 2024Q3

REPORT INFORMATION
  Report Type: Spontaneous
  Country: BE (occurrence: BE)
  Receive Date: 20240714
  Receipt Date: 20240714
  Transmission Date: 20241017
  Serious: Yes (Other)
  Sender: NOVARTIS
  Company Number: BE-PFIZER INC-202400206823

PATIENT

DRUGS (1)
  1. CYCLOSPORINE [Interacting]
     Active Substance: CYCLOSPORINE
     Indication: Immunosuppressant drug therapy
     Dosage: 50% ON DAY 6, 75% ON DAY 7, AND FULL DOSE ON DAY 8
     Route: 065

REACTIONS (2)
  - Acute kidney injury [Unknown]
  - Drug interaction [Unknown]
